FAERS Safety Report 18753302 (Version 1)
Quarter: 2021Q1

REPORT INFORMATION
  Report Type: Spontaneous
  Country: US (occurrence: US)
  Receive Date: 20210118
  Receipt Date: 20210118
  Transmission Date: 20210419
  Serious: No
  Sender: FDA-Public Use
  Company Number: US-TEVA-2021-US-1869631

PATIENT
  Age: 71 Year
  Sex: Female

DRUGS (14)
  1. COPAXONE [Suspect]
     Active Substance: GLATIRAMER ACETATE
     Indication: MULTIPLE SCLEROSIS
     Dosage: 20 MILLIGRAM DAILY;
     Route: 058
     Dates: start: 20180111
  2. ATORVASTATIN [Concomitant]
     Active Substance: ATORVASTATIN
  3. LATANOPROST. [Concomitant]
     Active Substance: LATANOPROST
  4. OCUVITE [Concomitant]
     Active Substance: VITAMINS
  5. LEVOTHYROXIN [Concomitant]
     Active Substance: LEVOTHYROXINE
  6. VITAMIN E [Concomitant]
     Active Substance: .ALPHA.-TOCOPHEROL
  7. ASPIRIN. [Concomitant]
     Active Substance: ASPIRIN
  8. DIVALPROEX [Concomitant]
     Active Substance: DIVALPROEX SODIUM
  9. LUTEIN [Concomitant]
     Active Substance: LUTEIN
  10. PROBIOTIC [Concomitant]
     Active Substance: PROBIOTICS NOS
  11. CRANBERRY. [Concomitant]
     Active Substance: CRANBERRY
  12. HYDROCHLOROTHIAZID [Concomitant]
     Active Substance: HYDROCHLOROTHIAZIDE
  13. IRON [Concomitant]
     Active Substance: IRON
  14. VITAMIN D3 [Concomitant]
     Active Substance: CHOLECALCIFEROL

REACTIONS (1)
  - Injection site bruising [Not Recovered/Not Resolved]
